FAERS Safety Report 14382710 (Version 9)
Quarter: 2019Q4

REPORT INFORMATION
  Report Type: Spontaneous
  Country: US (occurrence: US)
  Receive Date: 20180112
  Receipt Date: 20191008
  Transmission Date: 20200122
  Serious: Yes (Other)
  Sender: FDA-Public Use
  Company Number: US-ASTRAZENECA-2018SE02370

PATIENT
  Age: 74 Year
  Sex: Male
  Weight: 66.7 kg

DRUGS (11)
  1. TUDORZA PRESSAIR [Suspect]
     Active Substance: ACLIDINIUM BROMIDE
     Indication: CHRONIC OBSTRUCTIVE PULMONARY DISEASE
     Route: 055
     Dates: start: 20171229
  2. ALBUTEROL. [Concomitant]
     Active Substance: ALBUTEROL
     Indication: DYSPNOEA
     Route: 065
  3. PROAIR HFA [Concomitant]
     Active Substance: ALBUTEROL SULFATE
  4. CENTRUM SILVER [Concomitant]
     Active Substance: MINERALS\VITAMINS
     Indication: OSTEOPOROSIS
  5. CENTRUM SILVER [Concomitant]
     Active Substance: MINERALS\VITAMINS
     Indication: BLOOD CHOLESTEROL ABNORMAL
  6. OXYGEN. [Concomitant]
     Active Substance: OXYGEN
     Dosage: 100%
     Dates: start: 2016
  7. TUDORZA PRESSAIR [Suspect]
     Active Substance: ACLIDINIUM BROMIDE
     Indication: CHRONIC OBSTRUCTIVE PULMONARY DISEASE
     Route: 055
     Dates: start: 20171220
  8. SPIRIVA [Concomitant]
     Active Substance: TIOTROPIUM BROMIDE MONOHYDRATE
     Indication: DYSPNOEA
     Route: 065
  9. TUDORZA PRESSAIR [Suspect]
     Active Substance: ACLIDINIUM BROMIDE
     Indication: CHRONIC OBSTRUCTIVE PULMONARY DISEASE
     Route: 055
     Dates: start: 2013
  10. TUDORZA PRESSAIR [Suspect]
     Active Substance: ACLIDINIUM BROMIDE
     Indication: CHRONIC OBSTRUCTIVE PULMONARY DISEASE
     Route: 055
  11. BRIA [Concomitant]
     Indication: DYSPNOEA
     Route: 065

REACTIONS (34)
  - Dyspnoea [Unknown]
  - Pain [Unknown]
  - Sinus disorder [Unknown]
  - Weight decreased [Unknown]
  - Intentional product misuse [Unknown]
  - Bladder cancer [Unknown]
  - Hypertension [Unknown]
  - Post procedural haemorrhage [Unknown]
  - Glaucoma [Unknown]
  - Macular degeneration [Unknown]
  - Wrist fracture [Unknown]
  - Panic attack [Unknown]
  - Product dose omission [Unknown]
  - Device malfunction [Unknown]
  - Spinal column injury [Unknown]
  - Pneumonia [Unknown]
  - Memory impairment [Unknown]
  - Tooth loss [Unknown]
  - Feeling abnormal [Unknown]
  - Tuberculosis [Unknown]
  - Product use issue [Unknown]
  - Gastric ulcer [Unknown]
  - Body height decreased [Unknown]
  - Blood urine present [Unknown]
  - Off label use [Unknown]
  - Tremor [Unknown]
  - Anaemia [Unknown]
  - Blood zinc decreased [Unknown]
  - Asthenia [Unknown]
  - Fall [Unknown]
  - Femur fracture [Unknown]
  - Anxiety [Unknown]
  - Device failure [Unknown]
  - Product taste abnormal [Unknown]

NARRATIVE: CASE EVENT DATE: 2015
